FAERS Safety Report 4334294-8 (Version None)
Quarter: 2004Q2

REPORT INFORMATION
  Report Type: 
  Country: None (occurrence: None)
  Receive Date: 20040405
  Receipt Date: 20040329
  Transmission Date: 20050107
  Serious: Yes (Hospitalization, Other)
  Sender: FDA-Public Use
  Company Number: KH-2002-0003096

PATIENT
  Age: 75 Year
  Sex: Male

DRUGS (10)
  1. UNIPHYL [Suspect]
     Indication: EMPHYSEMA
     Dosage: 600 MG, HS
  2. OXYGEN (OXYGEN) [Concomitant]
  3. HUMIBID (GUAIFENESIN) [Concomitant]
  4. PREDNISONE [Concomitant]
  5. CELEXA [Concomitant]
  6. LASIX [Concomitant]
  7. ZAROXOLYN (METOLAZOLE) [Concomitant]
  8. ASPIRIN [Concomitant]
  9. CARDIZEM [Concomitant]
  10. POTASSIUM CHLORIDE [Concomitant]

REACTIONS (6)
  - CONVULSION [None]
  - DISORIENTATION [None]
  - DRUG TOXICITY [None]
  - DYSPNOEA [None]
  - HYPOKALAEMIA [None]
  - LOSS OF CONSCIOUSNESS [None]
